FAERS Safety Report 15591582 (Version 1)
Quarter: 2018Q4

REPORT INFORMATION
  Report Type: Spontaneous
  Country: US (occurrence: US)
  Receive Date: 20181102
  Receipt Date: 20181102
  Transmission Date: 20190205
  Serious: No
  Sender: FDA-Public Use
  Company Number: US-PHARMACEUTICS INTERNATIONAL, INC. (PII)-2018PII000024

PATIENT

DRUGS (2)
  1. DIAMOX /00016901/ [Concomitant]
     Active Substance: ACETAZOLAMIDE
     Indication: PRODUCT USED FOR UNKNOWN INDICATION
     Dosage: UNK
     Route: 065
  2. HYDROCORTISONE USP [Suspect]
     Active Substance: HYDROCORTISONE
     Indication: ADRENAL INSUFFICIENCY
     Dosage: 5 MG, UNK
     Route: 048

REACTIONS (4)
  - Drug ineffective [Unknown]
  - Product measured potency issue [Unknown]
  - Product substitution issue [Unknown]
  - Product quality issue [Unknown]
